FAERS Safety Report 17576129 (Version 1)
Quarter: 2020Q1

REPORT INFORMATION
  Report Type: Report from Study
  Country: None (occurrence: US)
  Receive Date: 20200324
  Receipt Date: 20200324
  Transmission Date: 20200409
  Serious: Yes (Other)
  Sender: FDA-Public Use
  Company Number: US-ABBVIE-20K-163-3331347-00

PATIENT
  Sex: Female

DRUGS (1)
  1. HUMIRA [Suspect]
     Active Substance: ADALIMUMAB
     Indication: RHEUMATOID ARTHRITIS
     Route: 058
     Dates: start: 20180130

REACTIONS (7)
  - Concussion [Recovered/Resolved]
  - Depression [Not Recovered/Not Resolved]
  - Corneal abrasion [Recovering/Resolving]
  - Fall [Recovered/Resolved]
  - Blindness transient [Recovered/Resolved]
  - Streptococcal infection [Unknown]
  - Hypoaesthesia [Not Recovered/Not Resolved]

NARRATIVE: CASE EVENT DATE: 2019
